FAERS Safety Report 5383492-3 (Version None)
Quarter: 2007Q3

REPORT INFORMATION
  Report Type: 
  Country: None (occurrence: None)
  Receive Date: 20070706
  Receipt Date: 20070620
  Transmission Date: 20080115
  Serious: Yes (Hospitalization)
  Sender: FDA-Public Use
  Company Number: 8023625

PATIENT
  Age: 1 Month
  Sex: Female
  Weight: 5 kg

DRUGS (6)
  1. KEPPRA [Suspect]
     Indication: CONVULSION
     Dosage: 5 MG/KG/D PO   CONVULSION
     Route: 048
     Dates: start: 20070423, end: 20070423
  2. KEPPRA [Suspect]
     Indication: CONVULSION
     Dosage: 10 MG/KG/D PO   CONVULSION
     Route: 048
     Dates: start: 20070424, end: 20070424
  3. KEPPRA [Suspect]
     Indication: CONVULSION
     Dosage: 15 MG/KG/D PO   CONVULSION
     Route: 048
     Dates: start: 20070425, end: 20070425
  4. ANTIBIOTICS [Concomitant]
  5. PHENYTOIN [Concomitant]
  6. FRAGMIN [Concomitant]

REACTIONS (7)
  - AGITATION [None]
  - FLATULENCE [None]
  - INCORRECT DOSE ADMINISTERED [None]
  - INFANTILE SPITTING UP [None]
  - INSOMNIA [None]
  - PHARMACEUTICAL PRODUCT COMPLAINT [None]
  - THERAPEUTIC AGENT TOXICITY [None]
